FAERS Safety Report 26014004 (Version 1)
Quarter: 2025Q4

REPORT INFORMATION
  Report Type: Spontaneous
  Country: CA (occurrence: CA)
  Receive Date: 20251108
  Receipt Date: 20251108
  Transmission Date: 20260117
  Serious: Yes (Hospitalization, Disabling, Other)
  Sender: AUROBINDO
  Company Number: CA-AUROBINDO-AUR-APL-2025-056196

PATIENT
  Age: 22 Year
  Sex: Male

DRUGS (3)
  1. PREGABALIN [Suspect]
     Active Substance: PREGABALIN
     Indication: Generalised anxiety disorder
     Dosage: 50 MILLIGRAM, ONCE A DAY
     Route: 048
  2. PREGABALIN [Suspect]
     Active Substance: PREGABALIN
     Dosage: 100 MILLIGRAM, ONCE A DAY
     Route: 048
  3. PREGABALIN [Suspect]
     Active Substance: PREGABALIN
     Dosage: 100 MILLIGRAM, 3 TIMES A DAY
     Route: 048

REACTIONS (12)
  - Delirium [Recovering/Resolving]
  - Parkinson^s disease [Recovering/Resolving]
  - Psychotic disorder [Recovering/Resolving]
  - Suicidal ideation [Recovering/Resolving]
  - Akathisia [Recovering/Resolving]
  - Confusional state [Recovering/Resolving]
  - Crying [Recovering/Resolving]
  - Hypoaesthesia [Recovering/Resolving]
  - Insomnia [Recovering/Resolving]
  - Memory impairment [Recovering/Resolving]
  - Palpitations [Recovering/Resolving]
  - Withdrawal syndrome [Recovering/Resolving]
